FAERS Safety Report 7205024-7 (Version None)
Quarter: 2010Q4

REPORT INFORMATION
  Report Type: 
  Country: None (occurrence: None)
  Receive Date: 20101230
  Receipt Date: 20101222
  Transmission Date: 20110411
  Serious: Yes (Hospitalization, Other)
  Sender: FDA-Public Use
  Company Number: IT-ABBOTT-10P-083-0687148-00

PATIENT
  Age: 35 Year
  Sex: Female

DRUGS (2)
  1. LEUPROLIDE ACETATE [Suspect]
     Indication: SURGERY
  2. GN-RH ANGONIST [Concomitant]
     Indication: SURGERY
     Route: 065

REACTIONS (1)
  - ENDOMETRIAL METAPLASIA [None]
